FAERS Safety Report 18829169 (Version 1)
Quarter: 2021Q1

REPORT INFORMATION
  Report Type: Spontaneous
  Country: US (occurrence: US)
  Receive Date: 20210201
  Receipt Date: 20210201
  Transmission Date: 20210419
  Serious: No
  Sender: FDA-Public Use
  Company Number: US-ABBVIE-20K-163-3564983-00

PATIENT
  Age: 37 Year
  Sex: Male
  Weight: 71.73 kg

DRUGS (2)
  1. CELEBREX [Concomitant]
     Active Substance: CELECOXIB
     Indication: ATTENTION DEFICIT HYPERACTIVITY DISORDER
  2. HUMIRA [Suspect]
     Active Substance: ADALIMUMAB
     Indication: ANKYLOSING SPONDYLITIS
     Route: 058
     Dates: start: 20200911

REACTIONS (3)
  - Injection site haemorrhage [Recovered/Resolved]
  - Device issue [Unknown]
  - Injection site pain [Recovering/Resolving]

NARRATIVE: CASE EVENT DATE: 20200911
